FAERS Safety Report 26107851 (Version 1)
Quarter: 2025Q4

REPORT INFORMATION
  Report Type: Report from Study
  Country: EU (occurrence: EU)
  Receive Date: 20251201
  Receipt Date: 20251201
  Transmission Date: 20260117
  Serious: Yes (Hospitalization, Other)
  Sender: MYLAN
  Company Number: EU-ACORDA THERAPEUTICS IRELAND LIMITED-ACO_178602_2024

PATIENT
  Age: 76 Year
  Sex: Male

DRUGS (44)
  1. TAMOXIFEN [Suspect]
     Active Substance: TAMOXIFEN
     Indication: Neoplasm malignant
     Dosage: 1 DOSAGE FORM, QD
     Dates: start: 202510
  2. TAMOXIFEN [Suspect]
     Active Substance: TAMOXIFEN
     Dosage: 1 DOSAGE FORM, QD
     Route: 065
     Dates: start: 202510
  3. TAMOXIFEN [Suspect]
     Active Substance: TAMOXIFEN
     Dosage: 1 DOSAGE FORM, QD
     Route: 065
     Dates: start: 202510
  4. TAMOXIFEN [Suspect]
     Active Substance: TAMOXIFEN
     Dosage: 1 DOSAGE FORM, QD
     Dates: start: 202510
  5. INBRIJA [Suspect]
     Active Substance: LEVODOPA
     Indication: On and off phenomenon
     Dosage: 33 MILLIGRAM
  6. INBRIJA [Suspect]
     Active Substance: LEVODOPA
     Indication: Parkinsonian crisis
     Dosage: 33 MILLIGRAM
  7. INBRIJA [Suspect]
     Active Substance: LEVODOPA
     Dosage: 33 MILLIGRAM
     Route: 055
  8. INBRIJA [Suspect]
     Active Substance: LEVODOPA
     Dosage: 33 MILLIGRAM
     Route: 055
  9. INBRIJA [Suspect]
     Active Substance: LEVODOPA
     Dosage: 33 MILLIGRAM
  10. INBRIJA [Suspect]
     Active Substance: LEVODOPA
     Dosage: 33 MILLIGRAM
  11. INBRIJA [Suspect]
     Active Substance: LEVODOPA
     Dosage: 33 MILLIGRAM
     Route: 055
  12. INBRIJA [Suspect]
     Active Substance: LEVODOPA
     Dosage: 33 MILLIGRAM
     Route: 055
  13. INBRIJA [Suspect]
     Active Substance: LEVODOPA
     Dosage: 33 MILLIGRAM
  14. INBRIJA [Suspect]
     Active Substance: LEVODOPA
     Dosage: 33 MILLIGRAM
     Route: 055
  15. INBRIJA [Suspect]
     Active Substance: LEVODOPA
     Dosage: 33 MILLIGRAM
  16. INBRIJA [Suspect]
     Active Substance: LEVODOPA
     Dosage: 33 MILLIGRAM
     Route: 055
  17. AMLODIPINE BESYLATE\ATORVASTATIN CALCIUM [Suspect]
     Active Substance: AMLODIPINE BESYLATE\ATORVASTATIN CALCIUM
     Indication: Product used for unknown indication
     Dosage: UNK
  18. AMLODIPINE BESYLATE\ATORVASTATIN CALCIUM [Suspect]
     Active Substance: AMLODIPINE BESYLATE\ATORVASTATIN CALCIUM
     Dosage: UNK
     Route: 065
  19. AMLODIPINE BESYLATE\ATORVASTATIN CALCIUM [Suspect]
     Active Substance: AMLODIPINE BESYLATE\ATORVASTATIN CALCIUM
     Dosage: UNK
     Route: 065
  20. AMLODIPINE BESYLATE\ATORVASTATIN CALCIUM [Suspect]
     Active Substance: AMLODIPINE BESYLATE\ATORVASTATIN CALCIUM
     Dosage: UNK
  21. XADAGO [Concomitant]
     Active Substance: SAFINAMIDE MESYLATE
     Indication: Product used for unknown indication
     Dosage: UNK
  22. XADAGO [Concomitant]
     Active Substance: SAFINAMIDE MESYLATE
     Dosage: UNK
     Route: 065
  23. XADAGO [Concomitant]
     Active Substance: SAFINAMIDE MESYLATE
     Dosage: UNK
     Route: 065
  24. XADAGO [Concomitant]
     Active Substance: SAFINAMIDE MESYLATE
     Dosage: UNK
  25. NEUPRO [Concomitant]
     Active Substance: ROTIGOTINE
     Indication: Product used for unknown indication
     Dosage: UNK
  26. NEUPRO [Concomitant]
     Active Substance: ROTIGOTINE
     Dosage: UNK
     Route: 065
  27. NEUPRO [Concomitant]
     Active Substance: ROTIGOTINE
     Dosage: UNK
     Route: 065
  28. NEUPRO [Concomitant]
     Active Substance: ROTIGOTINE
     Dosage: UNK
  29. ONGENTYS [Concomitant]
     Active Substance: OPICAPONE
     Indication: Product used for unknown indication
     Dosage: UNK
  30. ONGENTYS [Concomitant]
     Active Substance: OPICAPONE
     Dosage: UNK
     Route: 065
  31. ONGENTYS [Concomitant]
     Active Substance: OPICAPONE
     Dosage: UNK
     Route: 065
  32. ONGENTYS [Concomitant]
     Active Substance: OPICAPONE
     Dosage: UNK
  33. TRAZODONE HYDROCHLORIDE [Concomitant]
     Active Substance: TRAZODONE HYDROCHLORIDE
     Indication: Product used for unknown indication
     Dosage: UNK
  34. TRAZODONE HYDROCHLORIDE [Concomitant]
     Active Substance: TRAZODONE HYDROCHLORIDE
     Dosage: UNK
     Route: 065
  35. TRAZODONE HYDROCHLORIDE [Concomitant]
     Active Substance: TRAZODONE HYDROCHLORIDE
     Dosage: UNK
     Route: 065
  36. TRAZODONE HYDROCHLORIDE [Concomitant]
     Active Substance: TRAZODONE HYDROCHLORIDE
     Dosage: UNK
  37. CARBIDOPA\LEVODOPA [Concomitant]
     Active Substance: CARBIDOPA\LEVODOPA
     Indication: On and off phenomenon
     Dosage: UNK
     Dates: start: 20241204, end: 20241219
  38. CARBIDOPA\LEVODOPA [Concomitant]
     Active Substance: CARBIDOPA\LEVODOPA
     Indication: Parkinsonian crisis
     Dosage: UNK
     Route: 065
     Dates: start: 20241204, end: 20241219
  39. CARBIDOPA\LEVODOPA [Concomitant]
     Active Substance: CARBIDOPA\LEVODOPA
     Dosage: UNK
     Route: 065
     Dates: start: 20241204, end: 20241219
  40. CARBIDOPA\LEVODOPA [Concomitant]
     Active Substance: CARBIDOPA\LEVODOPA
     Dosage: UNK
     Dates: start: 20241204, end: 20241219
  41. BENSERAZIDE HYDROCHLORIDE\LEVODOPA [Concomitant]
     Active Substance: BENSERAZIDE HYDROCHLORIDE\LEVODOPA
     Indication: Product used for unknown indication
     Dosage: 5 DOSAGE FORM, QD
     Dates: start: 202412
  42. BENSERAZIDE HYDROCHLORIDE\LEVODOPA [Concomitant]
     Active Substance: BENSERAZIDE HYDROCHLORIDE\LEVODOPA
     Dosage: 5 DOSAGE FORM, QD
     Route: 065
     Dates: start: 202412
  43. BENSERAZIDE HYDROCHLORIDE\LEVODOPA [Concomitant]
     Active Substance: BENSERAZIDE HYDROCHLORIDE\LEVODOPA
     Dosage: 5 DOSAGE FORM, QD
     Route: 065
     Dates: start: 202412
  44. BENSERAZIDE HYDROCHLORIDE\LEVODOPA [Concomitant]
     Active Substance: BENSERAZIDE HYDROCHLORIDE\LEVODOPA
     Dosage: 5 DOSAGE FORM, QD
     Dates: start: 202412

REACTIONS (32)
  - Post procedural haematoma [Recovering/Resolving]
  - Breast cancer [Not Recovered/Not Resolved]
  - Parkinson^s disease [Unknown]
  - Hallucination, visual [Recovering/Resolving]
  - Cough [Recovered/Resolved]
  - Motor dysfunction [Recovering/Resolving]
  - Tongue disorder [Recovering/Resolving]
  - Speech disorder [Recovering/Resolving]
  - Saliva altered [Unknown]
  - Mobility decreased [Recovering/Resolving]
  - Bradykinesia [Recovering/Resolving]
  - Eyelid function disorder [Recovering/Resolving]
  - Dry throat [Recovering/Resolving]
  - Tongue dry [Recovering/Resolving]
  - Nasal injury [Unknown]
  - Blood pressure systolic increased [Not Recovered/Not Resolved]
  - Condition aggravated [Unknown]
  - Scar inflammation [Unknown]
  - Procedural pain [Not Recovered/Not Resolved]
  - On and off phenomenon [Unknown]
  - Dry mouth [Recovering/Resolving]
  - Vision blurred [Recovering/Resolving]
  - Dizziness [Unknown]
  - Fatigue [Unknown]
  - Gait disturbance [Unknown]
  - Malaise [Unknown]
  - Fall [Not Recovered/Not Resolved]
  - Drug effect less than expected [Not Recovered/Not Resolved]
  - Unevaluable event [Recovering/Resolving]
  - Therapeutic product effect delayed [Unknown]
  - Drug ineffective [Not Recovered/Not Resolved]
  - Device issue [Unknown]

NARRATIVE: CASE EVENT DATE: 20241210
